FAERS Safety Report 23258226 (Version 2)
Quarter: 2024Q1

REPORT INFORMATION
  Report Type: Report from Study
  Country: US (occurrence: US)
  Receive Date: 20231204
  Receipt Date: 20240108
  Transmission Date: 20240410
  Serious: No
  Sender: FDA-Public Use
  Company Number: US-ALXN-A202308965

PATIENT
  Age: 59 Year
  Sex: Male
  Weight: 101.59 kg

DRUGS (1)
  1. STRENSIQ [Suspect]
     Active Substance: ASFOTASE ALFA
     Indication: Hypophosphatasia
     Dosage: UNK
     Route: 065
     Dates: start: 202306

REACTIONS (10)
  - COVID-19 [Unknown]
  - Pain in extremity [Unknown]
  - Chondrocalcinosis [Unknown]
  - Hypertension [Unknown]
  - Vitamin B6 increased [Unknown]
  - Blood alkaline phosphatase decreased [Unknown]
  - Blood test abnormal [Unknown]
  - Injection site pain [Unknown]
  - Injection site pruritus [Unknown]
  - Injection site erythema [Unknown]

NARRATIVE: CASE EVENT DATE: 20230701
